FAERS Safety Report 6170089-0 (Version None)
Quarter: 2009Q2

REPORT INFORMATION
  Report Type: 
  Country: None (occurrence: None)
  Receive Date: 20090428
  Receipt Date: 20090424
  Transmission Date: 20091009
  Serious: Yes (Other)
  Sender: FDA-Public Use
  Company Number: B0484035A

PATIENT
  Sex: Male
  Weight: 25.1 kg

DRUGS (4)
  1. ABACAVIR [Suspect]
     Indication: HIV INFECTION
     Dosage: 1.5TAB PER DAY
     Dates: start: 20070629, end: 20070701
  2. COMBIVIR [Suspect]
     Indication: HIV INFECTION
     Dosage: 1.5TAB PER DAY
     Dates: start: 20070629
  3. NEVIRAPINE [Suspect]
     Indication: HIV INFECTION
     Dosage: 200MG TWICE PER DAY
     Dates: start: 20070629
  4. COTRIMOXAZOLE [Concomitant]
     Indication: HIV INFECTION
     Dates: start: 20070615

REACTIONS (12)
  - ABDOMINAL PAIN [None]
  - COUGH [None]
  - DRUG HYPERSENSITIVITY [None]
  - DYSPNOEA [None]
  - FATIGUE [None]
  - MALAISE [None]
  - NAUSEA [None]
  - OROPHARYNGEAL PAIN [None]
  - PHARYNGITIS [None]
  - PYREXIA [None]
  - UPPER RESPIRATORY TRACT INFECTION [None]
  - VOMITING [None]
